FAERS Safety Report 19850195 (Version 2)
Quarter: 2022Q2

REPORT INFORMATION
  Report Type: Spontaneous
  Country: US (occurrence: US)
  Receive Date: 20210917
  Receipt Date: 20220531
  Transmission Date: 20220720
  Serious: Yes (Death, Hospitalization, Other)
  Sender: FDA-Public Use
  Company Number: US-UPSHER-SMITH LABORATORIES, LLC-2021USL00624

PATIENT
  Sex: Female
  Weight: 47.619 kg

DRUGS (17)
  1. AMIODARONE HYDROCHLORIDE [Suspect]
     Active Substance: AMIODARONE HYDROCHLORIDE
     Indication: Atrial fibrillation
     Dosage: 200 MG, 1X/DAY
     Route: 048
     Dates: end: 20170727
  2. ASPIRIN [Concomitant]
     Active Substance: ASPIRIN
     Dosage: 81 MG, 1X/DAY
     Route: 048
  3. COREG [Concomitant]
     Active Substance: CARVEDILOL
     Dosage: 6.25 MG, 2X/DAY
     Route: 048
     Dates: end: 201402
  4. COREG [Concomitant]
     Active Substance: CARVEDILOL
     Dosage: UNK
     Dates: start: 2014
  5. FIBERCON [Concomitant]
     Active Substance: CALCIUM POLYCARBOPHIL
     Dosage: 625 MG, AS DIRECTED
     Route: 048
  6. KLOR-CON M [Concomitant]
     Active Substance: POTASSIUM CHLORIDE
     Dosage: 20 MEQ, 2X/DAY
     Route: 048
  7. LASIX [Concomitant]
     Active Substance: FUROSEMIDE
     Dosage: 40 MG, 1X/DAY
     Route: 048
  8. LEVOTHYROXINE [Concomitant]
     Active Substance: LEVOTHYROXINE
     Dosage: 50 ?G, 1X/DAY
     Route: 048
  9. LEVOTHYROXINE [Concomitant]
     Active Substance: LEVOTHYROXINE
     Dosage: 100 ?G, 1X/DAY
     Route: 048
  10. SENNA LAXATIVE [Concomitant]
     Active Substance: SENNOSIDES
     Dosage: 8.6 MG, 2X/DAY
     Route: 048
  11. ZOCOR [Concomitant]
     Active Substance: SIMVASTATIN
     Dosage: 20 MG, 1X/DAY
     Route: 048
     Dates: end: 20170727
  12. CYANOCOBALAMIN (VIT B-12) [Concomitant]
     Dosage: 1 ML, 1X/MONTH
     Route: 030
  13. ACETAMINOPHEN\HYDROCODONE [Concomitant]
     Active Substance: ACETAMINOPHEN\HYDROCODONE
  14. OMEPRAZOLE [Concomitant]
     Active Substance: OMEPRAZOLE
  15. SPIRIVA [Concomitant]
     Active Substance: TIOTROPIUM BROMIDE MONOHYDRATE
  16. VENTOLIN [Concomitant]
     Active Substance: ALBUTEROL SULFATE
  17. SENNALAX-S [Concomitant]
     Active Substance: DOCUSATE SODIUM\SENNOSIDES
     Dosage: 3 DOSAGE FORM, 1X/DAY
     Route: 048

REACTIONS (25)
  - Chronic left ventricular failure [Fatal]
  - Sinus node dysfunction [Fatal]
  - Chronic kidney disease [Not Recovered/Not Resolved]
  - Vena cava thrombosis [Recovered/Resolved]
  - Deep vein thrombosis [Recovered/Resolved]
  - Mitral valve incompetence [Unknown]
  - Aortic valve incompetence [Unknown]
  - Pathogen resistance [Unknown]
  - Respiratory failure [Unknown]
  - Interstitial lung disease [Unknown]
  - Breast pain [Unknown]
  - Diastolic dysfunction [Unknown]
  - Post thrombotic syndrome [Unknown]
  - Arthralgia [Unknown]
  - Bronchitis [Unknown]
  - Appetite disorder [Unknown]
  - Bundle branch block right [Unknown]
  - Cardiac valve disease [Unknown]
  - Fatigue [Unknown]
  - Malaise [Unknown]
  - Hypotension [Unknown]
  - Asthenia [Unknown]
  - Nausea [Unknown]
  - Gait disturbance [Unknown]
  - Off label use [Recovered/Resolved]

NARRATIVE: CASE EVENT DATE: 20120101
